FAERS Safety Report 10509533 (Version 1)
Quarter: 2014Q4

REPORT INFORMATION
  Report Type: Spontaneous
  Country: TR (occurrence: TR)
  Receive Date: 20141009
  Receipt Date: 20141009
  Transmission Date: 20150528
  Serious: Yes (Hospitalization)
  Sender: FDA-Public Use
  Company Number: PHHY2014TR129474

PATIENT
  Age: 32 Year
  Sex: Male

DRUGS (13)
  1. LITHIUM CARBONATE. [Suspect]
     Active Substance: LITHIUM CARBONATE
     Indication: BIPOLAR I DISORDER
     Dosage: 1200 MG, PER DAY
     Route: 065
  2. RISPERIDONE. [Suspect]
     Active Substance: RISPERIDONE
     Indication: PSYCHOTIC DISORDER
     Route: 065
  3. OLANZAPINE. [Suspect]
     Active Substance: OLANZAPINE
     Indication: BIPOLAR I DISORDER
     Route: 065
  4. DULOXETINE [Suspect]
     Active Substance: DULOXETINE
     Indication: BIPOLAR I DISORDER
     Dosage: 60 MG, PER DAY
     Route: 065
  5. VALPROATE SODIUM. [Suspect]
     Active Substance: VALPROATE SODIUM
     Indication: BIPOLAR I DISORDER
     Dosage: 1250 MG, PER DAY
     Route: 065
  6. CITALOPRAM [Suspect]
     Active Substance: CITALOPRAM HYDROBROMIDE
     Indication: BIPOLAR I DISORDER
     Route: 065
  7. VENLAFAXINE [Suspect]
     Active Substance: VENLAFAXINE HYDROCHLORIDE
     Indication: BIPOLAR I DISORDER
     Dosage: 225 MG, PER DAY
     Route: 065
  8. QUETIAPINE [Suspect]
     Active Substance: QUETIAPINE
     Indication: BIPOLAR I DISORDER
     Dosage: 600 MG, PER DAY
     Route: 065
  9. ARIPIPRAZOLE. [Suspect]
     Active Substance: ARIPIPRAZOLE
     Indication: BIPOLAR I DISORDER
     Dosage: 10 MG, PER DAY
     Route: 065
  10. ARIPIPRAZOLE. [Suspect]
     Active Substance: ARIPIPRAZOLE
     Dosage: 5 MG, PER DAY
     Route: 065
  11. BIPERIDEN [Suspect]
     Active Substance: BIPERIDEN
     Indication: PSYCHOTIC DISORDER
     Route: 065
  12. RISPERIDONE. [Suspect]
     Active Substance: RISPERIDONE
     Indication: BIPOLAR I DISORDER
  13. BUPROPIONE CLORIDRATO [Suspect]
     Active Substance: BUPROPION HYDROCHLORIDE
     Indication: BIPOLAR I DISORDER
     Dosage: 150 MG, PER DAY
     Route: 065

REACTIONS (23)
  - Irritability [Recovering/Resolving]
  - Sexual dysfunction [Recovering/Resolving]
  - Attention deficit/hyperactivity disorder [Not Recovered/Not Resolved]
  - Sleep disorder [Recovering/Resolving]
  - Learning disorder [Not Recovered/Not Resolved]
  - Feeling guilty [Recovering/Resolving]
  - Dysphoria [Recovering/Resolving]
  - Energy increased [Recovering/Resolving]
  - Anhedonia [Recovering/Resolving]
  - Psychomotor retardation [Recovering/Resolving]
  - Abnormal behaviour [Recovering/Resolving]
  - Logorrhoea [Recovering/Resolving]
  - Hypersomnia [Recovering/Resolving]
  - Mania [Recovering/Resolving]
  - Impulsive behaviour [Recovering/Resolving]
  - Aggression [Recovering/Resolving]
  - Euphoric mood [Recovering/Resolving]
  - Depression [Unknown]
  - Suicidal behaviour [Recovering/Resolving]
  - Depressive symptom [Recovering/Resolving]
  - Memory impairment [Not Recovered/Not Resolved]
  - Distractibility [Recovering/Resolving]
  - Asthenia [Recovering/Resolving]
